FAERS Safety Report 10004004 (Version 1)
Quarter: 2014Q1

REPORT INFORMATION
  Report Type: Report from Study
  Country: JP (occurrence: JP)
  Receive Date: 20140312
  Receipt Date: 20140312
  Transmission Date: 20141002
  Serious: Yes (Hospitalization)
  Sender: FDA-Public Use
  Company Number: PHHY2014JP028684

PATIENT
  Age: 7 Year
  Sex: Female

DRUGS (3)
  1. EVEROLIMUS [Suspect]
     Dosage: 2 MG, DAILY
     Route: 048
     Dates: start: 20131126
  2. EVEROLIMUS [Suspect]
     Indication: ASTROCYTOMA, LOW GRADE
  3. ANTIEPILEPTICS [Concomitant]

REACTIONS (3)
  - Epilepsy [Recovered/Resolved]
  - Mood altered [Unknown]
  - Stomatitis [Recovering/Resolving]
